FAERS Safety Report 5554703-6 (Version None)
Quarter: 2007Q4

REPORT INFORMATION
  Report Type: 
  Country: None (occurrence: None)
  Receive Date: 20071211
  Receipt Date: 20071211
  Transmission Date: 20080405
  Serious: No
  Sender: FDA-Public Use
  Company Number: None

PATIENT

DRUGS (2)
  1. BETAMETHASONE [Suspect]
     Dosage: 2 SHOTS
     Dates: start: 20070910
  2. BETAMETHASONE [Suspect]
     Dosage: 2 SHOTS
     Dates: start: 20070927

REACTIONS (9)
  - AGITATION [None]
  - BACK PAIN [None]
  - FATIGUE [None]
  - HEADACHE [None]
  - HYPOAESTHESIA [None]
  - INSOMNIA [None]
  - MUSCULOSKELETAL PAIN [None]
  - NECK PAIN [None]
  - PAIN IN EXTREMITY [None]
